FAERS Safety Report 6640928-5 (Version None)
Quarter: 2010Q1

REPORT INFORMATION
  Report Type: 
  Country: None (occurrence: None)
  Receive Date: 20100318
  Receipt Date: 20100315
  Transmission Date: 20100710
  Serious: Yes (Hospitalization)
  Sender: FDA-Public Use
  Company Number: FR-KINGPHARMUSA00001-K201000309

PATIENT
  Age: 75 Year
  Sex: Male

DRUGS (6)
  1. ALTACE [Suspect]
     Indication: CARDIAC FAILURE
     Dosage: 10 MG, QD
     Route: 048
     Dates: start: 20090806
  2. FLUTICASONE PROPIONATE W/SALMETEROL [Concomitant]
     Dosage: 100 MCG, QD
  3. SPIRIVA [Concomitant]
     Dosage: 18 MCG, QID
  4. ALLOPURINOL [Concomitant]
     Dosage: 300 MG, QD
     Route: 048
  5. ALDALIX [Concomitant]
     Indication: HYPERTENSION
     Dosage: 50/20 MG, QD
     Dates: start: 20090806
  6. PREVISCAN [Concomitant]
     Dosage: 20 MG, QD
     Route: 048
     Dates: start: 20090806

REACTIONS (1)
  - SINUS ARREST [None]
